FAERS Safety Report 25166116 (Version 7)
Quarter: 2025Q3

REPORT INFORMATION
  Report Type: Report from Study
  Country: CA (occurrence: CA)
  Receive Date: 20250407
  Receipt Date: 20250723
  Transmission Date: 20251021
  Serious: Yes (Hospitalization)
  Sender: CSL BEHRING
  Company Number: CA-BEH-2025196828

PATIENT
  Age: 81 Year
  Sex: Female
  Weight: 68 kg

DRUGS (23)
  1. HIZENTRA [Suspect]
     Active Substance: HUMAN IMMUNOGLOBULIN G
     Indication: Secondary immunodeficiency
     Dosage: UNK, QW
     Route: 058
     Dates: start: 20241114
  2. HIZENTRA [Suspect]
     Active Substance: HUMAN IMMUNOGLOBULIN G
     Dosage: UNK, QW
     Route: 058
  3. HIZENTRA [Suspect]
     Active Substance: HUMAN IMMUNOGLOBULIN G
     Route: 065
     Dates: start: 20250210
  4. HIZENTRA [Suspect]
     Active Substance: HUMAN IMMUNOGLOBULIN G
     Route: 065
     Dates: start: 20250225
  5. HIZENTRA [Suspect]
     Active Substance: HUMAN IMMUNOGLOBULIN G
     Route: 065
     Dates: start: 20250311
  6. HIZENTRA [Suspect]
     Active Substance: HUMAN IMMUNOGLOBULIN G
     Dosage: 16 G, QOW
     Route: 058
     Dates: start: 20241114
  7. HIZENTRA [Suspect]
     Active Substance: HUMAN IMMUNOGLOBULIN G
     Dosage: 16 G, QOW
     Route: 065
     Dates: start: 202503
  8. HIZENTRA [Suspect]
     Active Substance: HUMAN IMMUNOGLOBULIN G
     Dosage: 16 G, QOW
     Route: 058
     Dates: start: 20241114
  9. HIZENTRA [Suspect]
     Active Substance: HUMAN IMMUNOGLOBULIN G
     Route: 065
     Dates: start: 20250501
  10. HIZENTRA [Suspect]
     Active Substance: HUMAN IMMUNOGLOBULIN G
     Route: 065
     Dates: start: 20250428
  11. HIZENTRA [Suspect]
     Active Substance: HUMAN IMMUNOGLOBULIN G
     Route: 065
     Dates: start: 20250513
  12. ACETAMINOPHEN [Concomitant]
     Active Substance: ACETAMINOPHEN
  13. ASPIRIN [Concomitant]
     Active Substance: ASPIRIN
  14. DEXILANT [Concomitant]
     Active Substance: DEXLANSOPRAZOLE
  15. DOMPERIDONE [Concomitant]
     Active Substance: DOMPERIDONE
  16. DULOXETINE [Concomitant]
     Active Substance: DULOXETINE
  17. FERROUS SULFATE [Concomitant]
     Active Substance: FERROUS SULFATE
  18. VALACYCLOVIR [Concomitant]
     Active Substance: VALACYCLOVIR HYDROCHLORIDE
  19. CALCIUM\VITAMIN D [Concomitant]
     Active Substance: CALCIUM\VITAMIN D
  20. VITAMIN B12 [Concomitant]
     Active Substance: CYANOCOBALAMIN
  21. BISOPROLOL [Concomitant]
     Active Substance: BISOPROLOL
  22. SULFATRIM [Concomitant]
     Active Substance: SULFAMETHOXAZOLE\TRIMETHOPRIM
  23. SYNTHROID [Concomitant]
     Active Substance: LEVOTHYROXINE SODIUM

REACTIONS (16)
  - COVID-19 [Recovering/Resolving]
  - Infusion site oedema [Unknown]
  - Infusion site oedema [Unknown]
  - Infusion site discharge [Unknown]
  - Balance disorder [Unknown]
  - Fatigue [Unknown]
  - Infusion site oedema [Unknown]
  - Gait disturbance [Unknown]
  - Dizziness [Not Recovered/Not Resolved]
  - Muscular weakness [Not Recovered/Not Resolved]
  - Head discomfort [Not Recovered/Not Resolved]
  - Product dose omission issue [Unknown]
  - Asthenia [Recovering/Resolving]
  - Anosmia [Recovering/Resolving]
  - Ageusia [Recovering/Resolving]
  - Infusion site oedema [Unknown]

NARRATIVE: CASE EVENT DATE: 20250210
